FAERS Safety Report 4978067-1 (Version None)
Quarter: 2006Q2

REPORT INFORMATION
  Report Type: 
  Country: None (occurrence: None)
  Receive Date: 20060420
  Receipt Date: 20060130
  Transmission Date: 20061013
  Serious: Yes (Hospitalization)
  Sender: FDA-Public Use
  Company Number: US-BRISTOL-MYERS SQUIBB COMPANY-13264171

PATIENT
  Age: 48 Year
  Sex: Female
  Weight: 74 kg

DRUGS (11)
  1. CARBOPLATIN [Suspect]
     Indication: BREAST CANCER METASTATIC
     Dosage: GIVEN DAYS 1 + 8, THERAPY START DATE 11-NOV-05.
     Route: 042
     Dates: start: 20060120, end: 20060120
  2. IRINOTECAN HCL [Suspect]
     Indication: BREAST CANCER METASTATIC
     Dosage: GIVEN DAY 1 + 8.  THERAPY START DATE 11-NOV-05.
     Route: 042
     Dates: start: 20060120, end: 20060120
  3. M.V.I. [Concomitant]
  4. PREDNISONE [Concomitant]
  5. ALBUTEROL [Concomitant]
  6. ACTONEL [Concomitant]
  7. CELEBREX [Concomitant]
  8. ASPIRIN [Concomitant]
     Indication: PAIN
  9. MOTRIN [Concomitant]
     Indication: PAIN
  10. TYLENOL (CAPLET) [Concomitant]
     Indication: PAIN
  11. PROTONIX [Concomitant]
     Route: 048

REACTIONS (7)
  - BACTERAEMIA [None]
  - BLOOD MAGNESIUM DECREASED [None]
  - BLOOD POTASSIUM DECREASED [None]
  - HYPOTENSION [None]
  - KLEBSIELLA BACTERAEMIA [None]
  - NEUTROPHIL COUNT DECREASED [None]
  - WHITE BLOOD CELL COUNT DECREASED [None]
